FAERS Safety Report 13935161 (Version 1)
Quarter: 2017Q3

REPORT INFORMATION
  Report Type: Spontaneous
  Country: US (occurrence: None)
  Receive Date: 20170901
  Receipt Date: 20170901
  Transmission Date: 20171127
  Serious: Yes (Hospitalization)
  Sender: FDA-Public Use
  Company Number: None

PATIENT
  Age: 84 Year
  Sex: Male

DRUGS (2)
  1. METOLAZONE. [Suspect]
     Active Substance: METOLAZONE
     Indication: HYPERTENSION
     Dosage: 10 MG AM PO
     Route: 048
     Dates: start: 20161108, end: 20170611
  2. FUROSEMIDE. [Suspect]
     Active Substance: FUROSEMIDE
     Indication: HYPERTENSION
     Route: 048
     Dates: start: 20160225, end: 20170611

REACTIONS (4)
  - Constipation [None]
  - Acute kidney injury [None]
  - Hypotension [None]
  - Hypokalaemia [None]

NARRATIVE: CASE EVENT DATE: 20170608
